FAERS Safety Report 21273008 (Version 4)
Quarter: 2022Q4

REPORT INFORMATION
  Report Type: Spontaneous
  Country: CA (occurrence: CA)
  Receive Date: 20220831
  Receipt Date: 20221017
  Transmission Date: 20230113
  Serious: Yes (Other)
  Sender: FDA-Public Use
  Company Number: CA-BEH-2022149074

PATIENT
  Age: 11 Year
  Sex: Female
  Weight: 45.5 kg

DRUGS (1)
  1. PRIVIGEN [Suspect]
     Active Substance: HUMAN IMMUNOGLOBULIN G
     Indication: Myocarditis
     Dosage: 36 MILLILITER
     Route: 042
     Dates: start: 20220520, end: 20220520

REACTIONS (13)
  - Drug hypersensitivity [Unknown]
  - Hypotension [Unknown]
  - Dyspnoea [Unknown]
  - Respiratory rate decreased [Unknown]
  - Heart rate decreased [Unknown]
  - Drug intolerance [Unknown]
  - Pleural effusion [Unknown]
  - Chest pain [Unknown]
  - Headache [Unknown]
  - Hypervolaemia [Unknown]
  - Hyperosmolar state [Unknown]
  - No adverse event [Unknown]
  - Off label use [Unknown]

NARRATIVE: CASE EVENT DATE: 20220520
